FAERS Safety Report 8101318-1 (Version None)
Quarter: 2012Q1

REPORT INFORMATION
  Report Type: 
  Country: None (occurrence: None)
  Receive Date: 20120131
  Receipt Date: 20120124
  Transmission Date: 20120608
  Serious: Yes (Other)
  Sender: FDA-Public Use
  Company Number: BR-JNJFOC-20120112188

PATIENT
  Sex: Female

DRUGS (1)
  1. LISTERINE COOL CITRUS [Suspect]
     Indication: DENTAL DISORDER PROPHYLAXIS
     Dosage: ONE FLASK FOR ONE WEEK
     Route: 048

REACTIONS (1)
  - THERMAL BURN [None]
